FAERS Safety Report 13450009 (Version 1)
Quarter: 2017Q2

REPORT INFORMATION
  Report Type: Spontaneous
  Country: US (occurrence: US)
  Receive Date: 20170417
  Receipt Date: 20170417
  Transmission Date: 20170830
  Serious: No
  Sender: FDA-Public Use
  Company Number: US-BION-20160490

PATIENT
  Age: 66 Year
  Sex: Male
  Weight: 72.57 kg

DRUGS (2)
  1. ALEVE [Suspect]
     Active Substance: NAPROXEN SODIUM
     Dosage: 1 DF BID
     Route: 048
  2. ADVIL [Concomitant]
     Active Substance: IBUPROFEN

REACTIONS (1)
  - Off label use [Unknown]
